FAERS Safety Report 8138357-0 (Version None)
Quarter: 2012Q1

REPORT INFORMATION
  Report Type: 
  Country: None (occurrence: None)
  Receive Date: 20120215
  Receipt Date: 20120210
  Transmission Date: 20120608
  Serious: Yes (Other)
  Sender: FDA-Public Use
  Company Number: CA-JNJFOC-20120110854

PATIENT
  Age: 70 Year
  Sex: Female
  Weight: 67.13 kg

DRUGS (9)
  1. ACETAMINOPHEN [Suspect]
  2. ACETAMINOPHEN [Suspect]
     Indication: PAIN
  3. LYRICA [Concomitant]
     Indication: FIBROMYALGIA
     Dosage: 1 IN AM AND 1 IN PM; FOR THE PAST 3 WEEKS
  4. HYDROCHLOROTHIAZIDE [Concomitant]
     Indication: HYPERTENSION
     Dosage: STARTED 11 YEARS AGO  1/2 PILL EVERY AM
     Dates: start: 20010101
  5. SYNTHROID [Concomitant]
     Indication: HYPOTHYROIDISM
     Dosage: TAKEN FOR PAST 11 YEARS 1/2 PILL EVERY DAY
     Dates: start: 20010101
  6. CELEBREX [Concomitant]
     Indication: OSTEOARTHRITIS
     Dosage: TAKES ONE AT NOON. FOR THE PAST 11 YEARS
     Dates: start: 20010101
  7. ACETAMINOPHEN [Suspect]
     Indication: MIGRAINE
     Dosage: TOOK 20
     Route: 048
     Dates: start: 20120115
  8. VITAMIN B-12 [Concomitant]
     Indication: VITAMIN B12 DEFICIENCY
     Dosage: 1 INJECTION EVERY 2 MONTHS FOR THE PAST 11 YEARS
     Route: 050
     Dates: start: 20010101
  9. DIAZEPAM [Concomitant]
     Indication: SLEEP DISORDER THERAPY
     Dosage: TAKES 1/2 AT BEDTIME FOR THE PAST 9 YEARS.
     Dates: start: 20030101

REACTIONS (5)
  - SENSATION OF FOREIGN BODY [None]
  - PAIN [None]
  - ABDOMINAL DISCOMFORT [None]
  - GASTRIC HAEMORRHAGE [None]
  - MALAISE [None]
